FAERS Safety Report 21161885 (Version 1)
Quarter: 2022Q3

REPORT INFORMATION
  Report Type: Spontaneous
  Country: FR (occurrence: FR)
  Receive Date: 20220802
  Receipt Date: 20220802
  Transmission Date: 20221027
  Serious: Yes (Hospitalization)
  Sender: FDA-Public Use
  Company Number: None

PATIENT
  Age: 47 Year
  Sex: Female
  Weight: 150 kg

DRUGS (2)
  1. SOLU-MEDROL [Suspect]
     Active Substance: METHYLPREDNISOLONE SODIUM SUCCINATE
     Dosage: 1 DF, WEEKLY
     Dates: end: 20220101
  2. BECLOMETHASONE DIPROPIONATE [Suspect]
     Active Substance: BECLOMETHASONE DIPROPIONATE
     Indication: Asthma
     Dosage: 6 DF, 1X/DAY
     Dates: end: 20220101

REACTIONS (2)
  - Adrenal insufficiency [Recovered/Resolved]
  - Steroid withdrawal syndrome [Recovered/Resolved]

NARRATIVE: CASE EVENT DATE: 20220107
